FAERS Safety Report 5980212-6 (Version None)
Quarter: 2008Q4

REPORT INFORMATION
  Report Type: 
  Country: None (occurrence: None)
  Receive Date: 20081202
  Receipt Date: 20081202
  Transmission Date: 20090506
  Serious: No
  Sender: FDA-Public Use
  Company Number: None

PATIENT
  Age: 33 Year
  Sex: Female
  Weight: 76.6579 kg

DRUGS (1)
  1. NITROFUR 100MG MYLAN [Suspect]
     Indication: URINARY TRACT INFECTION
     Dosage: 1 CAPSULE TWICE DAILY PO
     Route: 048
     Dates: start: 20081124, end: 20081125

REACTIONS (1)
  - HYPERSENSITIVITY [None]
